FAERS Safety Report 10512490 (Version 5)
Quarter: 2017Q3

REPORT INFORMATION
  Report Type: Report from Study
  Country: GT (occurrence: GT)
  Receive Date: 20141011
  Receipt Date: 20170904
  Transmission Date: 20171127
  Serious: Yes (Other)
  Sender: FDA-Public Use
  Company Number: PHHY2014GT131670

PATIENT
  Sex: Male
  Weight: 70 kg

DRUGS (4)
  1. RANITIDINE. [Concomitant]
     Active Substance: RANITIDINE
     Indication: PRODUCT USED FOR UNKNOWN INDICATION
     Dosage: UNK
     Route: 065
  2. VALPAKINE [Concomitant]
     Active Substance: VALPROATE SODIUM
     Indication: PRODUCT USED FOR UNKNOWN INDICATION
     Dosage: UNK
     Route: 065
  3. GILENYA [Suspect]
     Active Substance: FINGOLIMOD HYDROCHLORIDE
     Indication: MULTIPLE SCLEROSIS
     Dosage: 0.5 MG, QD
     Route: 048
  4. GILENYA [Suspect]
     Active Substance: FINGOLIMOD HYDROCHLORIDE
     Dosage: 0.5 MG, QD
     Route: 048
     Dates: start: 20141014

REACTIONS (8)
  - Crying [Unknown]
  - Mobility decreased [Not Recovered/Not Resolved]
  - Drug withdrawal syndrome [Unknown]
  - Peripheral swelling [Not Recovered/Not Resolved]
  - Balance disorder [Not Recovered/Not Resolved]
  - Thrombosis [Not Recovered/Not Resolved]
  - Depression [Not Recovered/Not Resolved]
  - Gait disturbance [Not Recovered/Not Resolved]
